FAERS Safety Report 18631953 (Version 4)
Quarter: 2021Q1

REPORT INFORMATION
  Report Type: Report from Study
  Country: US (occurrence: US)
  Receive Date: 20201217
  Receipt Date: 20210211
  Transmission Date: 20210419
  Serious: Yes (Life-Threatening)
  Sender: FDA-Public Use
  Company Number: US-GILEAD-2020-0509202

PATIENT
  Age: 37 Year
  Sex: Male
  Weight: 120 kg

DRUGS (26)
  1. AZITHROMYCIN ANHYDROUS. [Concomitant]
     Active Substance: AZITHROMYCIN ANHYDROUS
     Dosage: UNK
     Dates: start: 20201206, end: 20201206
  2. OXYGEN. [Concomitant]
     Active Substance: OXYGEN
     Dosage: 25 L/MIN
     Route: 055
     Dates: start: 20201228
  3. ASPIRIN [ACETYLSALICYLIC ACID] [Concomitant]
     Active Substance: ASPIRIN
     Dosage: UNK
     Dates: start: 20201210, end: 20201212
  4. CHLORTHALIDONE. [Concomitant]
     Active Substance: CHLORTHALIDONE
     Indication: HYPERTENSION
  5. CETIRIZINE [Concomitant]
     Active Substance: CETIRIZINE HYDROCHLORIDE
     Indication: SEASONAL ALLERGY
  6. OXYGEN. [Concomitant]
     Active Substance: OXYGEN
     Dosage: 20 L/MIN
     Route: 055
     Dates: start: 20201208
  7. TOCILIZUMAB. [Suspect]
     Active Substance: TOCILIZUMAB
     Dosage: UNK
     Route: 042
  8. HYDRALAZINE [Concomitant]
     Active Substance: HYDRALAZINE HYDROCHLORIDE
     Indication: HYPERTENSION
     Dosage: UNK
     Dates: start: 20201212, end: 20201212
  9. OXYGEN. [Concomitant]
     Active Substance: OXYGEN
     Dosage: 20 L/MIN
     Route: 055
     Dates: start: 20201209
  10. OXYGEN. [Concomitant]
     Active Substance: OXYGEN
     Dosage: 25 L/MIN
     Route: 055
     Dates: start: 20201207
  11. ACETAMINOPHEN. [Concomitant]
     Active Substance: ACETAMINOPHEN
     Indication: PYREXIA
     Dosage: UNK
     Dates: start: 20201206, end: 20201212
  12. DEXAMETHASONE. [Concomitant]
     Active Substance: DEXAMETHASONE
     Indication: COVID-19
     Dosage: UNK
     Dates: start: 20201206
  13. ONDANSETRON [Concomitant]
     Active Substance: ONDANSETRON
     Dosage: UNK
     Dates: start: 20201211, end: 20201211
  14. OXYCODONE [Concomitant]
     Active Substance: OXYCODONE
     Indication: HEADACHE
     Dosage: UNK
     Dates: start: 20201210, end: 20201211
  15. OXYGEN. [Concomitant]
     Active Substance: OXYGEN
     Dosage: 3 L/MIN
     Route: 055
     Dates: start: 20201209
  16. CEFTRIAXONE SODIUM. [Concomitant]
     Active Substance: CEFTRIAXONE SODIUM
     Dosage: UNK
     Dates: start: 20201206, end: 20201206
  17. OXYGEN. [Concomitant]
     Active Substance: OXYGEN
     Dosage: 25 L/MIN
     Route: 055
     Dates: start: 20201207
  18. REMDESIVIR. [Suspect]
     Active Substance: REMDESIVIR
     Indication: COVID-19 PNEUMONIA
     Dosage: MOST RECENT DOSE (VOLUME 100 ML) OF REMDESIVIR PRIOR TO SAE ONSET 08/DEC/020 AT 15:33
     Route: 042
     Dates: start: 20201207
  19. GUAIFENESIN. [Concomitant]
     Active Substance: GUAIFENESIN
     Dosage: UNK
     Dates: start: 20201208, end: 20201212
  20. VALSARTAN. [Concomitant]
     Active Substance: VALSARTAN
     Indication: HYPERTENSION
  21. OXYGEN. [Concomitant]
     Active Substance: OXYGEN
     Dosage: 25 L/MIN
     Route: 055
     Dates: start: 20201210
  22. BENZONATATE. [Concomitant]
     Active Substance: BENZONATATE
     Indication: COUGH
     Dosage: UNK
     Dates: start: 20201209, end: 20201209
  23. ENOXAPARIN SODIUM. [Concomitant]
     Active Substance: ENOXAPARIN SODIUM
     Dosage: UNK
     Dates: start: 20201207, end: 20201212
  24. TOCILIZUMAB. [Suspect]
     Active Substance: TOCILIZUMAB
     Indication: COVID-19 PNEUMONIA
     Dosage: MOST RECENT DOSE OF BLINDED TOCILIZUMAB PRIOR TO SAE ONSET 07/DEC/2020 AT 20:27
     Route: 042
  25. ALBUTEROL [SALBUTAMOL] [Concomitant]
     Active Substance: ALBUTEROL
     Indication: COVID-19 PNEUMONIA
     Dosage: UNK
     Dates: start: 20201210, end: 20201212
  26. OXYGEN. [Concomitant]
     Active Substance: OXYGEN
     Dosage: 20 L/MIN
     Route: 055
     Dates: start: 20201207

REACTIONS (1)
  - Sinus bradycardia [Recovered/Resolved]

NARRATIVE: CASE EVENT DATE: 20201208
